FAERS Safety Report 6393205 (Version 22)
Quarter: 2012Q4

REPORT INFORMATION
  Report Type: 
  Country: US (occurrence: US)
  Receive Date: 20070829
  Receipt Date: 20120830
  Transmission Date: 20130627
  Serious: Yes (Hospitalization, Other)
  Sender: FDA-Public Use
  Company Number: PHEH2007US11451

PATIENT
  Age: 43 Year
  Sex: Female
  Weight: 58.96 kg

DRUGS (24)
  1. AREDIA [Suspect]
  2. COUMADIN [Concomitant]
     Indication: PROTEIN S DEFICIENCY
     Dosage: 7.5 mg, UNK
     Dates: start: 20040211
  3. PERCOCET [Concomitant]
  4. TEGRETOL [Concomitant]
     Dosage: 200 mg, UNK
  5. DEPAKOTE [Concomitant]
     Indication: HYPOMANIA
  6. LYRICA [Concomitant]
     Dosage: 50 mg, QHS
  7. NEURONTIN [Concomitant]
     Indication: PAIN
  8. VALTREX [Concomitant]
     Dosage: 1 g, TID
  9. DYAZIDE [Concomitant]
     Indication: OEDEMA
  10. SERTRALINE [Concomitant]
  11. AMANTADINE [Concomitant]
  12. CLONIDINE [Concomitant]
  13. CLONOPIN [Concomitant]
  14. ACYCLOVIR [Concomitant]
     Dosage: 1 g, UNK
  15. ACYCLOVIR [Concomitant]
     Dosage: 400 mg, UNK
  16. ULTRAM [Concomitant]
     Indication: PAIN
  17. FLOVENT [Concomitant]
  18. XANAX [Concomitant]
  19. VITAMIN B6 [Concomitant]
  20. VITAMIN C [Concomitant]
  21. GRAPE SEED EXTRACT [Concomitant]
  22. ADVIL [Concomitant]
  23. CALCITONIN [Concomitant]
  24. MULTIVITAMINS [Concomitant]

REACTIONS (102)
  - Osteonecrosis of jaw [Unknown]
  - Pain [Unknown]
  - Anxiety [Unknown]
  - Injury [Unknown]
  - Anhedonia [Unknown]
  - Disability [Unknown]
  - Thrombophlebitis [Unknown]
  - Deep vein thrombosis [Unknown]
  - Uterine cancer [Unknown]
  - Transient ischaemic attack [Unknown]
  - Depression [Unknown]
  - Mass [Unknown]
  - Venous insufficiency [Unknown]
  - Spinal osteoarthritis [Unknown]
  - Rheumatoid arthritis [Unknown]
  - Diverticulum [Unknown]
  - Haemorrhoids [Unknown]
  - Exophthalmos [Unknown]
  - Mononeuropathy multiplex [Unknown]
  - Nodule [Unknown]
  - Mitral valve incompetence [Unknown]
  - Cerebral infarction [Unknown]
  - Herpes zoster [Unknown]
  - Irritable bowel syndrome [Unknown]
  - Antiphospholipid antibodies positive [Unknown]
  - Intervertebral disc protrusion [Unknown]
  - Hypercoagulation [Unknown]
  - Osteoporosis [Unknown]
  - Pain in extremity [Unknown]
  - Systemic lupus erythematosus [Unknown]
  - Multiple sclerosis [Unknown]
  - Bone pain [Unknown]
  - Migraine [Unknown]
  - Neuropathy peripheral [Unknown]
  - Hypoaesthesia [Unknown]
  - Abdominal pain [Unknown]
  - Musculoskeletal chest pain [Unknown]
  - Visual impairment [Unknown]
  - Sciatica [Unknown]
  - Musculoskeletal pain [Unknown]
  - Spondylolisthesis [Unknown]
  - Rotator cuff syndrome [Unknown]
  - Wound infection staphylococcal [Unknown]
  - Bacterial disease carrier [Unknown]
  - Hypomania [Unknown]
  - Fractured sacrum [Unknown]
  - Blister [Unknown]
  - Lymphadenopathy [Unknown]
  - Raynaud^s phenomenon [Unknown]
  - Insomnia [Unknown]
  - Rash vesicular [Unknown]
  - Pituitary enlargement [Unknown]
  - Hypomagnesaemia [Unknown]
  - Meralgia paraesthetica [Unknown]
  - Thrombophlebitis migrans [Unknown]
  - Fibrocystic breast disease [Unknown]
  - Muscle spasms [Unknown]
  - Psychomotor hyperactivity [Unknown]
  - Visual acuity reduced [Unknown]
  - Scotoma [Unknown]
  - Urinary retention [Unknown]
  - Hyperaesthesia [Unknown]
  - Radiculopathy [Unknown]
  - Amaurosis fugax [Unknown]
  - Polyarteritis nodosa [Unknown]
  - Dental prosthesis user [Unknown]
  - Gingival infection [Unknown]
  - Joint stiffness [Unknown]
  - Angiolipoma [Unknown]
  - Gingival abscess [Unknown]
  - Tooth abscess [Unknown]
  - Cellulitis [Unknown]
  - Infection [Unknown]
  - Basal cell carcinoma [Unknown]
  - Perivascular dermatitis [Unknown]
  - Actinic keratosis [Unknown]
  - Melanosis coli [Unknown]
  - Phlebolith [Unknown]
  - Prothrombin time prolonged [Unknown]
  - Squamous cell carcinoma [Unknown]
  - Aspartate aminotransferase increased [Unknown]
  - Second primary malignancy [Unknown]
  - Bronchitis [Unknown]
  - Blood glucose increased [Unknown]
  - Blepharospasm [Unknown]
  - Burning sensation [Unknown]
  - Feeling abnormal [Unknown]
  - Stress [Unknown]
  - Pyrexia [Unknown]
  - Dizziness [Unknown]
  - Headache [Unknown]
  - Adhesion [Unknown]
  - Atrophic vulvovaginitis [Unknown]
  - Viraemia [Unknown]
  - Skin lesion [Unknown]
  - Inflammation [Unknown]
  - Pelvic pain [Unknown]
  - Thrombosed varicose vein [None]
  - Restless legs syndrome [None]
  - Cerebral artery stenosis [None]
  - Back pain [None]
  - Decreased appetite [None]
